FAERS Safety Report 15183531 (Version 1)
Quarter: 2018Q3

REPORT INFORMATION
  Report Type: Spontaneous
  Country: US (occurrence: US)
  Receive Date: 20180723
  Receipt Date: 20180723
  Transmission Date: 20181010
  Serious: No
  Sender: FDA-Public Use
  Company Number: US-AMNEAL PHARMACEUTICALS-2018AMN00330

PATIENT
  Age: 47 Year

DRUGS (1)
  1. ISOTRETINOIN. [Suspect]
     Active Substance: ISOTRETINOIN

REACTIONS (2)
  - Angioedema [Unknown]
  - Erythema [Unknown]

NARRATIVE: CASE EVENT DATE: 20180606
